FAERS Safety Report 16087401 (Version 2)
Quarter: 2019Q2

REPORT INFORMATION
  Report Type: Spontaneous
  Country: KR (occurrence: KR)
  Receive Date: 20190319
  Receipt Date: 20190416
  Transmission Date: 20190711
  Serious: Yes (Death, Other)
  Sender: FDA-Public Use
  Company Number: KR-CELLTRION INC.-2019KR019448

PATIENT

DRUGS (6)
  1. BASILIXIMAB [Suspect]
     Active Substance: BASILIXIMAB
     Indication: IMMUNOSUPPRESSION
     Dosage: UNK, ON DAY OF SURGERY
  2. RITUXIMAB (UNKNOWN) [Suspect]
     Active Substance: RITUXIMAB
     Indication: IMMUNOSUPPRESSION
     Dosage: 375 MG/M2 BODY SURFACE AREA, SINGLE DOSE
     Route: 042
  3. BASILIXIMAB [Suspect]
     Active Substance: BASILIXIMAB
     Dosage: UNK, 4 DAYS POST SURGERY
  4. TACROLIMUS. [Suspect]
     Active Substance: TACROLIMUS
     Indication: IMMUNOSUPPRESSION
     Dosage: UNK
  5. METHYLPREDNISOLONE. [Suspect]
     Active Substance: METHYLPREDNISOLONE
     Indication: IMMUNOSUPPRESSION
     Dosage: UNK
  6. MYCOPHENOLATE MOFETIL. [Suspect]
     Active Substance: MYCOPHENOLATE MOFETIL
     Indication: IMMUNOSUPPRESSION
     Dosage: UNK

REACTIONS (3)
  - Off label use [Unknown]
  - Pneumonia [Fatal]
  - Sarcopenia [Unknown]
